FAERS Safety Report 4390032-4 (Version None)
Quarter: 2004Q2

REPORT INFORMATION
  Report Type: 
  Country: None (occurrence: None)
  Receive Date: 20040628
  Receipt Date: 20040621
  Transmission Date: 20050107
  Serious: Yes (Hospitalization)
  Sender: FDA-Public Use
  Company Number: 2004216948US

PATIENT
  Age: 42 Year
  Sex: Male
  Weight: 101 kg

DRUGS (13)
  1. CELEBREX [Suspect]
     Indication: PANCREATIC CARCINOMA
     Dosage: 800 MG, QD, ORAL
     Route: 048
     Dates: start: 20040409, end: 20040603
  2. CAMPTOSAR [Suspect]
     Indication: PANCREATIC CARCINOMA
     Dosage: 75 MG/M2, CYCLIC, IV
     Route: 042
     Dates: start: 20040409, end: 20040603
  3. COMPARATOR-GEMCITABINE (GEMCITABINE) INJECTION [Suspect]
     Indication: PANCREATIC CARCINOMA
     Dosage: 750 MG/M2, CYCLIC, IV
     Route: 042
     Dates: start: 20040409, end: 20040603
  4. FENTANYL [Concomitant]
  5. ZOFRAN (ONDASETRON HYDROCHLORIDE) [Concomitant]
  6. ATIVAN [Concomitant]
  7. BENADRYL [Concomitant]
  8. SYNTHROID [Concomitant]
  9. PROTONIX [Concomitant]
  10. DECADRON [Concomitant]
  11. FRAGMIN [Concomitant]
  12. DULCOLAX [Concomitant]
  13. MILK OF MAGNESIA TAB [Concomitant]

REACTIONS (4)
  - ABDOMINAL PAIN [None]
  - ANAEMIA [None]
  - MALIGNANT NEOPLASM PROGRESSION [None]
  - PANCREATIC CARCINOMA [None]
